FAERS Safety Report 21192518 (Version 1)
Quarter: 2022Q3

REPORT INFORMATION
  Report Type: Report from Study
  Country: FR (occurrence: FR)
  Receive Date: 20220809
  Receipt Date: 20220809
  Transmission Date: 20221027
  Serious: Yes (Other)
  Sender: FDA-Public Use
  Company Number: FR-GILEAD-2022-0592569

PATIENT
  Age: 47 Year
  Sex: Female

DRUGS (15)
  1. TENOFOVIR DISOPROXIL FUMARATE [Suspect]
     Active Substance: TENOFOVIR DISOPROXIL FUMARATE
     Indication: HIV-2 infection
     Dosage: UNK
     Route: 065
     Dates: start: 20030409, end: 20080909
  2. TENOFOVIR DISOPROXIL FUMARATE [Suspect]
     Active Substance: TENOFOVIR DISOPROXIL FUMARATE
     Dosage: UNK
     Route: 065
     Dates: start: 20161006, end: 20210204
  3. ATAZANAVIR [Concomitant]
     Active Substance: ATAZANAVIR
  4. RIMIFON [Concomitant]
     Active Substance: ISONIAZID
  5. EPIVIR [Concomitant]
     Active Substance: LAMIVUDINE
  6. VIRACEPT [Concomitant]
     Active Substance: NELFINAVIR MESYLATE
  7. BACTRIM [Concomitant]
     Active Substance: SULFAMETHOXAZOLE\TRIMETHOPRIM
  8. NORVIR [Concomitant]
     Active Substance: RITONAVIR
  9. KALETRA [Concomitant]
     Active Substance: LOPINAVIR\RITONAVIR
  10. MARAVIROC [Concomitant]
     Active Substance: MARAVIROC
  11. PREZISTA [Concomitant]
     Active Substance: DARUNAVIR ETHANOLATE
  12. INVIRASE [Concomitant]
     Active Substance: SAQUINAVIR MESYLATE
  13. REYATAZ [Concomitant]
     Active Substance: ATAZANAVIR SULFATE
  14. TIVICAY [Concomitant]
     Active Substance: DOLUTEGRAVIR SODIUM
  15. FOSCAVIR [Concomitant]
     Active Substance: FOSCARNET SODIUM

REACTIONS (6)
  - Virologic failure [Unknown]
  - Virologic failure [Unknown]
  - Virologic failure [Unknown]
  - Decreased immune responsiveness [Unknown]
  - Genotype drug resistance test positive [Unknown]
  - Off label use [Unknown]

NARRATIVE: CASE EVENT DATE: 20030409
